FAERS Safety Report 22861121 (Version 11)
Quarter: 2023Q4

REPORT INFORMATION
  Report Type: Report from Study
  Country: RU (occurrence: RU)
  Receive Date: 20230824
  Receipt Date: 20231218
  Transmission Date: 20240109
  Serious: Yes (Other)
  Sender: FDA-Public Use
  Company Number: RU-002147023-NVSC2023RU180976

PATIENT
  Age: 0 Year
  Sex: Female
  Weight: 7.7 kg

DRUGS (6)
  1. ZOLGENSMA [Suspect]
     Active Substance: ONASEMNOGENE ABEPARVOVEC-XIOI
     Indication: Spinal muscular atrophy
     Dosage: 44 ML, ONCE/SINGLE
     Route: 041
     Dates: start: 20230804, end: 20230804
  2. ZOLGENSMA [Suspect]
     Active Substance: ONASEMNOGENE ABEPARVOVEC-XIOI
     Indication: Quadriparesis
  3. PREDNISOLONE [Concomitant]
     Active Substance: PREDNISOLONE
     Indication: Product used for unknown indication
     Dosage: 4.375 MG, QD (EVERY MORNING) (3/4 TABLET + 1/8 TABLET)
     Route: 065
     Dates: start: 20230803
  4. ESOMEPRAZOLE [Concomitant]
     Active Substance: ESOMEPRAZOLE
     Indication: Product used for unknown indication
     Dosage: 2.5 MG, QD ( AT A BEDTIME) (1/4 SACHET) (PELLETS FOR SUSPENSION PREPARATION/ SACHETS)
     Route: 048
     Dates: start: 20230804
  5. ALUMINUM PHOSPHATE [Concomitant]
     Active Substance: ALUMINUM PHOSPHATE
     Indication: Product used for unknown indication
     Dosage: UNK, QD (AFTER FOOD) (GEL FOR ORAL ADMINISTRATIO N/ SACHETS)
     Route: 048
     Dates: start: 20230804
  6. CHOLECALCIFEROL [Concomitant]
     Active Substance: CHOLECALCIFEROL
     Indication: Product used for unknown indication
     Dosage: 1500 IU, QD (IN THE MORNING)
     Route: 048
     Dates: start: 20230804

REACTIONS (13)
  - Full blood count abnormal [Recovering/Resolving]
  - Prothrombin time shortened [Recovering/Resolving]
  - Blood bilirubin decreased [Not Recovered/Not Resolved]
  - Prothrombin index [Recovering/Resolving]
  - Thrombin time prolonged [Not Recovered/Not Resolved]
  - Blood lactate dehydrogenase increased [Recovering/Resolving]
  - Activated partial thromboplastin time shortened [Recovering/Resolving]
  - Decreased appetite [Recovered/Resolved]
  - Lethargy [Recovered/Resolved]
  - Aspartate aminotransferase increased [Recovering/Resolving]
  - Alanine aminotransferase increased [Not Recovered/Not Resolved]
  - Pyrexia [Recovered/Resolved]
  - Vomiting [Recovered/Resolved]

NARRATIVE: CASE EVENT DATE: 20230805
